FAERS Safety Report 4790133-2 (Version None)
Quarter: 2005Q4

REPORT INFORMATION
  Report Type: 
  Country: None (occurrence: None)
  Receive Date: 20051005
  Receipt Date: 20051005
  Transmission Date: 20060501
  Serious: Yes (Life-Threatening, Hospitalization)
  Sender: FDA-Public Use
  Company Number: None

PATIENT
  Age: 53 Year
  Sex: Female
  Weight: 86 kg

DRUGS (11)
  1. DOXORUBICIN HCL [Suspect]
     Indication: SARCOMA
     Dosage: 39MG (20MG/M2/DOSE), QD; IV
     Route: 042
     Dates: start: 20040811, end: 20040814
  2. LANSOPRAZOLE [Concomitant]
  3. DESMOPRESSIN [Concomitant]
  4. PAROXETINE HCL [Concomitant]
  5. LEVOTHYROXINE [Concomitant]
  6. TRAZODONE [Concomitant]
  7. HYDROCORTISONE [Concomitant]
  8. CEFEPIME [Concomitant]
  9. GENTAMICIN [Concomitant]
  10. DOCUSATE [Concomitant]
  11. BISACODYL [Concomitant]

REACTIONS (8)
  - CARDIOMYOPATHY [None]
  - EJECTION FRACTION DECREASED [None]
  - ESCHERICHIA BACTERAEMIA [None]
  - FEBRILE NEUTROPENIA [None]
  - LEFT VENTRICULAR FAILURE [None]
  - OXYGEN SATURATION DECREASED [None]
  - RIGHT VENTRICULAR FAILURE [None]
  - TACHYPNOEA [None]
